FAERS Safety Report 25079531 (Version 1)
Quarter: 2025Q1

REPORT INFORMATION
  Report Type: Spontaneous
  Country: PT (occurrence: PT)
  Receive Date: 20250314
  Receipt Date: 20250314
  Transmission Date: 20250408
  Serious: Yes (Hospitalization)
  Sender: AMGEN
  Company Number: None

PATIENT
  Age: 25 Year
  Sex: Female
  Weight: 46 kg

DRUGS (11)
  1. PEGFILGRASTIM [Suspect]
     Active Substance: PEGFILGRASTIM
     Indication: Chemotherapy side effect prophylaxis
     Route: 058
     Dates: start: 20250211, end: 20250211
  2. AMOXICILLIN [Concomitant]
     Active Substance: AMOXICILLIN
     Indication: Product used for unknown indication
     Route: 048
  3. PANTOPRAZOLE SODIUM [Concomitant]
     Active Substance: PANTOPRAZOLE SODIUM
     Indication: Product used for unknown indication
     Route: 065
  4. MYCOSTATIN [Concomitant]
     Active Substance: NYSTATIN
     Indication: Product used for unknown indication
     Route: 048
  5. GOSERELIN [Concomitant]
     Active Substance: GOSERELIN
     Indication: Product used for unknown indication
     Route: 058
  6. POTASSIUM CHLORIDE [Concomitant]
     Active Substance: POTASSIUM CHLORIDE
     Indication: Product used for unknown indication
     Route: 065
  7. ENOXAPARIN SODIUM [Concomitant]
     Active Substance: ENOXAPARIN SODIUM
     Indication: Product used for unknown indication
     Route: 065
  8. LACTULOSE [Concomitant]
     Active Substance: LACTULOSE
     Indication: Product used for unknown indication
     Route: 048
  9. FUROSEMIDE [Concomitant]
     Active Substance: FUROSEMIDE
     Indication: Product used for unknown indication
     Route: 065
  10. MORPHINE [Concomitant]
     Active Substance: MORPHINE
     Indication: Product used for unknown indication
     Route: 065
  11. IFOSFAMIDE [Concomitant]
     Active Substance: IFOSFAMIDE
     Indication: Product used for unknown indication
     Route: 040

REACTIONS (1)
  - Rash maculo-papular [Recovering/Resolving]

NARRATIVE: CASE EVENT DATE: 20250211
